FAERS Safety Report 6242659-2 (Version None)
Quarter: 2009Q2

REPORT INFORMATION
  Report Type: 
  Country: None (occurrence: None)
  Receive Date: 20090622
  Receipt Date: 20090622
  Transmission Date: 20091009
  Serious: No
  Sender: FDA-Public Use
  Company Number: None

PATIENT
  Age: 46 Year
  Sex: Male
  Weight: 85.2762 kg

DRUGS (1)
  1. ZICAM MATRIXX [Suspect]
     Indication: NASOPHARYNGITIS
     Dosage: ONE SQUIRT IN NOSTRIL EVERY 4 HOURS NASAL
     Route: 045
     Dates: start: 20090512, end: 20090512

REACTIONS (4)
  - HYPOGEUSIA [None]
  - HYPOSMIA [None]
  - NASAL DISCOMFORT [None]
  - PAROSMIA [None]
